FAERS Safety Report 7061761-9 (Version None)
Quarter: 2010Q4

REPORT INFORMATION
  Report Type: 
  Country: None (occurrence: None)
  Receive Date: 20101026
  Receipt Date: 20101018
  Transmission Date: 20110411
  Serious: Yes (Other)
  Sender: FDA-Public Use
  Company Number: AU-ROCHE-734892

PATIENT
  Sex: Male

DRUGS (10)
  1. ACTEMRA [Suspect]
     Indication: RHEUMATOID ARTHRITIS
     Route: 065
  2. ATACAND [Concomitant]
  3. MOBIC [Concomitant]
  4. CARTIA XT [Concomitant]
  5. FRUSEMIDE [Concomitant]
  6. SPIRONOLACTONE [Concomitant]
  7. LIPITOR [Concomitant]
  8. CALCIUM FOLINATE [Concomitant]
  9. METHOTREXATE [Concomitant]
  10. NOVORAPID [Concomitant]

REACTIONS (1)
  - DEEP VEIN THROMBOSIS [None]
